FAERS Safety Report 5118113-8 (Version None)
Quarter: 2006Q3

REPORT INFORMATION
  Report Type: 
  Country: None (occurrence: None)
  Receive Date: 20060926
  Receipt Date: 20060907
  Transmission Date: 20061208
  Serious: Yes (Hospitalization, Other)
  Sender: FDA-Public Use
  Company Number: CA200609002874

PATIENT
  Age: 73 Year
  Sex: Male

DRUGS (8)
  1. FORTEO [Suspect]
     Indication: OSTEOPOROSIS
     Dosage: 20 UG, DAILY (1/D)
     Dates: start: 20060620, end: 20060817
  2. FORTEO PEN (FORTEO PEN) PEN, DISPOSABLE [Concomitant]
  3. RAMIPRIL [Concomitant]
  4. DIVALPROEX SODIUM [Concomitant]
  5. LEVETIRACETAM [Concomitant]
  6. CALCIUM (CALCIUM) [Concomitant]
  7. VITAMIN D NOS (VITAMIN D NOS) [Concomitant]
  8. LEVOTHYROXINE SODIUM [Concomitant]

REACTIONS (6)
  - ARTHRALGIA [None]
  - LYMPH NODES SCAN ABNORMAL [None]
  - PELVIC FRACTURE [None]
  - SARCOMA [None]
  - SOFT TISSUE INJURY [None]
  - THROMBOSIS [None]
